FAERS Safety Report 12632990 (Version 2)
Quarter: 2016Q3

REPORT INFORMATION
  Report Type: Spontaneous
  Country: US (occurrence: US)
  Receive Date: 20160808
  Receipt Date: 20160808
  Transmission Date: 20161109
  Serious: No
  Sender: FDA-Public Use
  Company Number: US-BEH-2016057994

PATIENT
  Sex: Male
  Weight: 101 kg

DRUGS (12)
  1. BUPROPION XL [Concomitant]
     Active Substance: BUPROPION
  2. EPIPEN [Concomitant]
     Active Substance: EPINEPHRINE
  3. BENADRYL [Concomitant]
     Active Substance: DIPHENHYDRAMINE HYDROCHLORIDE
  4. PREDNISONE. [Concomitant]
     Active Substance: PREDNISONE
  5. ACETAMINOPHEN. [Concomitant]
     Active Substance: ACETAMINOPHEN
  6. FLONASE [Concomitant]
     Active Substance: FLUTICASONE PROPIONATE
  7. LORTAB [Concomitant]
     Active Substance: ACETAMINOPHEN\HYDROCODONE BITARTRATE
  8. DIPHENHYDRAMINE. [Concomitant]
     Active Substance: DIPHENHYDRAMINE
  9. SINGULAIR [Concomitant]
     Active Substance: MONTELUKAST SODIUM
  10. ZYRTEC [Concomitant]
     Active Substance: CETIRIZINE HYDROCHLORIDE
  11. HIZENTRA [Suspect]
     Active Substance: HUMAN IMMUNOGLOBULIN G
     Indication: HYPOGAMMAGLOBULINAEMIA
     Route: 058
     Dates: start: 20150223
  12. ALBUTEROL. [Concomitant]
     Active Substance: ALBUTEROL

REACTIONS (1)
  - Sinusitis [Unknown]
